FAERS Safety Report 8763275 (Version 2)
Quarter: 2012Q4

REPORT INFORMATION
  Report Type: Spontaneous
  Country: US (occurrence: None)
  Receive Date: 20120820
  Receipt Date: 20120830
  Transmission Date: 20130627
  Serious: Yes (Hospitalization)
  Sender: FDA-Public Use
  Company Number: 2012PROUSA01770

PATIENT
  Age: 65 Year
  Sex: Male

DRUGS (7)
  1. PROVENGE (SIPULEUCEL-T) SUSPENSION [Suspect]
     Indication: PROSTATE CANCER METASTATIC
     Route: 042
     Dates: start: 20120628, end: 20120628
  2. PROVENGE (SIPULEUCEL-T) SUSPENSION [Suspect]
     Indication: PROSTATE CANCER METASTATIC
     Route: 042
     Dates: start: 20120719, end: 20120719
  3. XGEVA [Suspect]
  4. CITRIC ACID [Suspect]
  5. LEVOTHYROXINE SODIUM (LEVOTHYROXINE SODIUM) [Concomitant]
  6. FLOMAX (TAMSULOSIN HYDROCHLORIDE) [Concomitant]
  7. ZOLPIDEM (ZOLPIDEM TARTRATE) [Concomitant]

REACTIONS (9)
  - Blood pressure increased [None]
  - Blood calcium decreased [None]
  - Dehydration [None]
  - Hypertension [None]
  - Parosmia [None]
  - Anaemia [None]
  - Hyperhidrosis [None]
  - Paraesthesia [None]
  - Decreased appetite [None]
